FAERS Safety Report 10206469 (Version 1)
Quarter: 2014Q2

REPORT INFORMATION
  Report Type: Spontaneous
  Country: US (occurrence: None)
  Receive Date: 20140528
  Receipt Date: 20140528
  Transmission Date: 20141212
  Serious: Yes (Other)
  Sender: FDA-Public Use
  Company Number: None

PATIENT
  Age: 69 Year
  Sex: Male
  Weight: 122.02 kg

DRUGS (1)
  1. BIOTENE DRY MOUTH ORAL RINSE [Suspect]
     Route: 048

REACTIONS (1)
  - Blood glucose increased [None]
